FAERS Safety Report 11693534 (Version 2)
Quarter: 2016Q1

REPORT INFORMATION
  Report Type: Report from Study
  Country: US (occurrence: US)
  Receive Date: 20151103
  Receipt Date: 20160226
  Transmission Date: 20160525
  Serious: Yes (Hospitalization, Other)
  Sender: FDA-Public Use
  Company Number: PHEH2015US021142

PATIENT
  Age: 41 Year
  Sex: Female
  Weight: 86.17 kg

DRUGS (23)
  1. ZOLOFT [Suspect]
     Active Substance: SERTRALINE HYDROCHLORIDE
     Indication: PRODUCT USED FOR UNKNOWN INDICATION
     Dosage: UNK
     Route: 065
  2. ZOLPIDEM [Concomitant]
     Active Substance: ZOLPIDEM\ZOLPIDEM TARTRATE
     Indication: PRODUCT USED FOR UNKNOWN INDICATION
     Dosage: UNK
     Route: 065
  3. TEMAZEPAM. [Concomitant]
     Active Substance: TEMAZEPAM
     Indication: PRODUCT USED FOR UNKNOWN INDICATION
     Dosage: UNK
     Route: 065
  4. ATIVAN [Concomitant]
     Active Substance: LORAZEPAM
     Indication: PRODUCT USED FOR UNKNOWN INDICATION
     Dosage: UNK
     Route: 065
  5. TRAZODONE [Concomitant]
     Active Substance: TRAZODONE HYDROCHLORIDE
     Indication: PRODUCT USED FOR UNKNOWN INDICATION
     Dosage: UNK
     Route: 065
  6. ABILIFY [Concomitant]
     Active Substance: ARIPIPRAZOLE
     Indication: DEPRESSION
     Dosage: UNK
     Route: 065
  7. MULTI VITAMIN [Concomitant]
     Active Substance: VITAMINS
     Indication: PRODUCT USED FOR UNKNOWN INDICATION
     Dosage: UNK
     Route: 065
  8. NUVIGIL [Concomitant]
     Active Substance: ARMODAFINIL
     Indication: PRODUCT USED FOR UNKNOWN INDICATION
     Dosage: UNK
     Route: 065
  9. MARIJUANA [Concomitant]
     Active Substance: CANNABIS SATIVA SUBSP. INDICA TOP
     Indication: PAIN MANAGEMENT
     Dosage: UNK
     Route: 065
  10. GILENYA [Suspect]
     Active Substance: FINGOLIMOD HYDROCHLORIDE
     Indication: RELAPSING-REMITTING MULTIPLE SCLEROSIS
     Dosage: 0.5 MG, QD
     Route: 048
     Dates: start: 20120228
  11. BACLOFEN. [Concomitant]
     Active Substance: BACLOFEN
     Indication: PRODUCT USED FOR UNKNOWN INDICATION
     Dosage: UNK
     Route: 065
  12. FERROUS SULFATE [Concomitant]
     Active Substance: FERROUS SULFATE\FERROUS SULFATE, DRIED
     Indication: PRODUCT USED FOR UNKNOWN INDICATION
     Dosage: UNK
     Route: 065
  13. LORCET [Concomitant]
     Active Substance: ACETAMINOPHEN\HYDROCODONE BITARTRATE
     Indication: PRODUCT USED FOR UNKNOWN INDICATION
     Dosage: UNK
     Route: 065
  14. CLONAZEPAM. [Concomitant]
     Active Substance: CLONAZEPAM
     Indication: INSOMNIA
     Dosage: UNK
     Route: 065
  15. FENTANYL. [Concomitant]
     Active Substance: FENTANYL
     Indication: PRODUCT USED FOR UNKNOWN INDICATION
     Dosage: UNK
     Route: 065
  16. LEVOFLOXACIN. [Concomitant]
     Active Substance: LEVOFLOXACIN
     Indication: PRODUCT USED FOR UNKNOWN INDICATION
     Dosage: UNK
     Route: 065
  17. PRILOSEC [Concomitant]
     Active Substance: OMEPRAZOLE MAGNESIUM
     Indication: PRODUCT USED FOR UNKNOWN INDICATION
     Dosage: UNK
     Route: 065
  18. NEURONTIN [Concomitant]
     Active Substance: GABAPENTIN
     Indication: PRODUCT USED FOR UNKNOWN INDICATION
     Dosage: UNK
     Route: 065
  19. TYLENOL [Concomitant]
     Active Substance: ACETAMINOPHEN
     Indication: PRODUCT USED FOR UNKNOWN INDICATION
     Dosage: UNK
     Route: 065
  20. ADVIL [Concomitant]
     Active Substance: IBUPROFEN
     Indication: PRODUCT USED FOR UNKNOWN INDICATION
     Dosage: UNK
     Route: 065
  21. LORAZEPAM. [Concomitant]
     Active Substance: LORAZEPAM
     Indication: PRODUCT USED FOR UNKNOWN INDICATION
     Dosage: UNK
     Route: 065
  22. LISINOPRIL. [Concomitant]
     Active Substance: LISINOPRIL
     Indication: PRODUCT USED FOR UNKNOWN INDICATION
     Dosage: UNK
     Route: 065
  23. VISTARIL [Concomitant]
     Active Substance: HYDROXYZINE PAMOATE
     Indication: PRODUCT USED FOR UNKNOWN INDICATION
     Dosage: UNK
     Route: 065

REACTIONS (69)
  - Muscle fatigue [Unknown]
  - Gait disturbance [Unknown]
  - Urinary retention [Unknown]
  - Decreased activity [Unknown]
  - Somnolence [Unknown]
  - Loss of consciousness [Unknown]
  - Abdominal distension [Unknown]
  - Feeling abnormal [Unknown]
  - Back pain [Unknown]
  - Clumsiness [Unknown]
  - Headache [Unknown]
  - Fatigue [Unknown]
  - Vision blurred [Unknown]
  - Hypoaesthesia [Unknown]
  - Constipation [Unknown]
  - Fall [Unknown]
  - Electrocardiogram abnormal [Unknown]
  - Blood pressure increased [Unknown]
  - Mastication disorder [Unknown]
  - Myalgia [Unknown]
  - Sensory loss [Unknown]
  - Depressed mood [Unknown]
  - Micturition urgency [Unknown]
  - Suicidal ideation [Unknown]
  - Speech disorder [Unknown]
  - Anxiety [Unknown]
  - Depressed level of consciousness [Unknown]
  - Weight increased [Unknown]
  - Nausea [Unknown]
  - Blood pressure decreased [Unknown]
  - Muscle spasms [Unknown]
  - Paraesthesia [Unknown]
  - Iron deficiency anaemia [Unknown]
  - Eye pain [Unknown]
  - Dysphagia [Unknown]
  - Protein urine present [Unknown]
  - Atrioventricular block first degree [Unknown]
  - Heart rate decreased [Unknown]
  - Dysuria [Unknown]
  - Pain in extremity [Unknown]
  - Nocturia [Unknown]
  - Arthralgia [Unknown]
  - Chest discomfort [Unknown]
  - Abdominal pain [Unknown]
  - Crying [Unknown]
  - Ventricular hypertrophy [Unknown]
  - Urobilinogen urine increased [Unknown]
  - Multiple sclerosis relapse [Unknown]
  - Grip strength decreased [Unknown]
  - Dizziness [Unknown]
  - Epilepsy [Unknown]
  - Dyspepsia [Unknown]
  - Joint swelling [Unknown]
  - Pain [Unknown]
  - Ventricular dyskinesia [Unknown]
  - Intervertebral disc protrusion [Unknown]
  - Urine bilirubin increased [Unknown]
  - Lymphocyte count decreased [Unknown]
  - Syncope [Recovered/Resolved]
  - Optic atrophy [Unknown]
  - Balance disorder [Unknown]
  - Memory impairment [Unknown]
  - Mental impairment [Unknown]
  - Insomnia [Unknown]
  - Asthenia [Unknown]
  - Lethargy [Unknown]
  - Cerebral atrophy [Unknown]
  - Weight decreased [Unknown]
  - Urinary tract infection [Unknown]

NARRATIVE: CASE EVENT DATE: 20120228
